FAERS Safety Report 8452458-9 (Version None)
Quarter: 2012Q2

REPORT INFORMATION
  Report Type: 
  Country: None (occurrence: None)
  Receive Date: 20120620
  Receipt Date: 20120614
  Transmission Date: 20120825
  Serious: No
  Sender: FDA-Public Use
  Company Number: US-PFIZER INC-2012143591

PATIENT
  Sex: Female

DRUGS (1)
  1. PRISTIQ [Suspect]
     Dosage: UNK
     Dates: end: 20111001

REACTIONS (4)
  - DRUG WITHDRAWAL SYNDROME [None]
  - IRRITABILITY [None]
  - SENSORY DISTURBANCE [None]
  - DIZZINESS [None]
